FAERS Safety Report 11716522 (Version 5)
Quarter: 2017Q3

REPORT INFORMATION
  Report Type: Report from Study
  Country: US (occurrence: US)
  Receive Date: 20151109
  Receipt Date: 20170821
  Transmission Date: 20171127
  Serious: Yes (Hospitalization)
  Sender: FDA-Public Use
  Company Number: US-009507513-1511USA004254

PATIENT
  Age: 16 Year
  Sex: Female
  Weight: 72.3 kg

DRUGS (18)
  1. CRIZOTINIB [Suspect]
     Active Substance: CRIZOTINIB
     Dosage: LOWER DOSE PER PROTOCOL (DOSE GROUP C)
     Route: 048
     Dates: start: 20140127
  2. ZOFRAN [Concomitant]
     Active Substance: ONDANSETRON HYDROCHLORIDE
     Indication: NAUSEA
     Dosage: UNK
  3. CRIZOTINIB [Suspect]
     Active Substance: CRIZOTINIB
     Dosage: LOWER DOSE PER PROTOCOL (DOSE GROUP C)
     Route: 048
     Dates: start: 20140122, end: 20140124
  4. CYTARABINE. [Suspect]
     Active Substance: CYTARABINE
     Dosage: 150 MG/M2, OVER 1 HOUR-30 MINUTES EVERY 12 HOURS ON DAYS 4 AND 5 (TOTAL 4 DOSES) (COURSE A)
     Route: 042
     Dates: start: 20140114
  5. IFOSFAMIDE. [Suspect]
     Active Substance: IFOSFAMIDE
     Indication: ANAPLASTIC LARGE CELL LYMPHOMA T- AND NULL-CELL TYPES
     Dosage: CYCLE 1 ,3 AND 5: 800 MG/M2, OVER 60 MINUTES ON DAYS 1-5 (COURSE A)
     Route: 042
     Dates: start: 20140111
  6. DEXAMETHASONE. [Suspect]
     Active Substance: DEXAMETHASONE
     Dosage: 5 MG/M2, 2X/DAY ON DAYS 1-5
     Route: 048
     Dates: start: 20140111
  7. ETOPOSIDE. [Suspect]
     Active Substance: ETOPOSIDE
     Indication: ANAPLASTIC LARGE CELL LYMPHOMA T- AND NULL-CELL TYPES
     Dosage: 100 MG/M2, OVER 2 HOURS ON DAYS 4 AND 5 (COURSE A)
     Route: 042
     Dates: start: 20140114
  8. METHOTREXATE. [Suspect]
     Active Substance: METHOTREXATE
     Indication: ANAPLASTIC LARGE CELL LYMPHOMA T- AND NULL-CELL TYPES
     Dosage: PROPHASE (CYCLE= 5 DAYS): 7.5-12 MG ON DAY 1 (AGE BASED DOSING)
     Route: 037
     Dates: start: 20140106, end: 20140106
  9. METHOTREXATE. [Suspect]
     Active Substance: METHOTREXATE
     Dosage: 3000MG/M2, OVER 3 HOURS ON DAY 1 (COURSE A)
     Route: 042
     Dates: start: 20140111, end: 20140111
  10. CYCLOPHOSPHAMIDE. [Suspect]
     Active Substance: CYCLOPHOSPHAMIDE
     Dosage: 200 MG/M2 OVER 30-60 MINUTES ON DAYS 1 AND 2, PROPHASE ONLY
     Route: 042
     Dates: start: 20140106, end: 20140106
  11. DEXAMETHASONE. [Suspect]
     Active Substance: DEXAMETHASONE
     Indication: ANAPLASTIC LARGE CELL LYMPHOMA T- AND NULL-CELL TYPES
     Dosage: PROPHASE (CYCLE= 5 DAYS): 5MG/M2, 1X/DAY ON DAYS 1-2 AND 5MG/M2 BID ON DAYS 3-5 (72 MG)
     Route: 048
     Dates: start: 20140106, end: 20140110
  12. CRIZOTINIB [Suspect]
     Active Substance: CRIZOTINIB
     Indication: ANAPLASTIC LARGE CELL LYMPHOMA T- AND NULL-CELL TYPES
     Dosage: 165 MG/M2, 2X/DAY ON DAYS 1-21 (COURSE A)
     Route: 048
     Dates: start: 20140111, end: 20140111
  13. DOXORUBICIN HYDROCHLORIDE. [Suspect]
     Active Substance: DOXORUBICIN HYDROCHLORIDE
     Dosage: 25 MG/M2, OVER 1-15 MINUTES ON DAYS 4 AND 5 (COURSE B)
     Route: 042
     Dates: start: 201401, end: 201401
  14. CRIZOTINIB [Suspect]
     Active Substance: CRIZOTINIB
     Dosage: 165 MG/M2, 2X/DAY ON DAYS 1-21 (COURSE B)
     Route: 048
     Dates: start: 20140112, end: 20140115
  15. CYCLOPHOSPHAMIDE. [Suspect]
     Active Substance: CYCLOPHOSPHAMIDE
     Dosage: 200 MG/M2 OVER 30-60 MINUTES ON DAYS 1-5
     Route: 042
     Dates: start: 20140107, end: 20140107
  16. HYDROCORTISONE. [Suspect]
     Active Substance: HYDROCORTISONE
     Indication: ANAPLASTIC LARGE CELL LYMPHOMA T- AND NULL-CELL TYPES
     Dosage: PROPHASE (CYCLE= 5 DAYS): 7.5-12 MG ON DAY 1 (AGE BASED DOSING)
     Route: 037
     Dates: start: 20140106, end: 20140106
  17. CYTARABINE. [Suspect]
     Active Substance: CYTARABINE
     Indication: ANAPLASTIC LARGE CELL LYMPHOMA T- AND NULL-CELL TYPES
     Dosage: PROPHASE (CYCLE= 5 DAYS): 15-24 MG (AGE BASED DOSING) ON DAY 1 (24 MG)
     Route: 037
     Dates: start: 20140106, end: 20140106
  18. BACTRIM [Concomitant]
     Active Substance: SULFAMETHOXAZOLE\TRIMETHOPRIM
     Dosage: UNK
     Dates: start: 20140111

REACTIONS (5)
  - Neutropenic colitis [Recovered/Resolved]
  - Seizure [Recovered/Resolved]
  - Vomiting [Recovered/Resolved]
  - Ileus [Recovered/Resolved]
  - Posterior reversible encephalopathy syndrome [Recovered/Resolved]

NARRATIVE: CASE EVENT DATE: 20140111
